FAERS Safety Report 13300523 (Version 1)
Quarter: 2017Q1

REPORT INFORMATION
  Report Type: Spontaneous
  Country: US (occurrence: US)
  Receive Date: 20170307
  Receipt Date: 20170307
  Transmission Date: 20170428
  Serious: No
  Sender: FDA-Public Use
  Company Number: US-TEVA-638400USA

PATIENT
  Sex: Female

DRUGS (6)
  1. NABUMETONE. [Concomitant]
     Active Substance: NABUMETONE
     Dosage: 375 MILLIGRAM DAILY;
  2. LAMOTRIGINE. [Concomitant]
     Active Substance: LAMOTRIGINE
  3. BACLOFEN. [Concomitant]
     Active Substance: BACLOFEN
  4. MONTELUKAST [Concomitant]
     Active Substance: MONTELUKAST SODIUM
  5. GABAPENTIN. [Suspect]
     Active Substance: GABAPENTIN
     Dosage: 600 MG TID THEN INCREASED TO 900 MG TID
     Route: 065
     Dates: start: 20150826, end: 20150924
  6. LEVOCETIRIZINE [Concomitant]
     Active Substance: LEVOCETIRIZINE

REACTIONS (4)
  - Dizziness [Unknown]
  - Drug ineffective [Unknown]
  - Hypoaesthesia [Unknown]
  - Chromaturia [Unknown]
